FAERS Safety Report 21960733 (Version 1)
Quarter: 2023Q1

REPORT INFORMATION
  Report Type: Spontaneous
  Country: US (occurrence: US)
  Receive Date: 20230207
  Receipt Date: 20230207
  Transmission Date: 20230417
  Serious: No
  Sender: FDA-Public Use
  Company Number: US-ENDO PHARMACEUTICALS INC-2022-005581

PATIENT
  Age: 69 Year
  Sex: Male
  Weight: 58.957 kg

DRUGS (2)
  1. FORTESTA [Suspect]
     Active Substance: TESTOSTERONE
     Indication: Hypogonadism
     Dosage: UNK UNKNOWN, UNKNOWN (AROUND APR-2020, THREE YEARS AGO)
     Route: 065
     Dates: start: 202004
  2. FORTESTA [Suspect]
     Active Substance: TESTOSTERONE
     Dosage: UNK UNKNOWN, UNKNOWN
     Route: 065
     Dates: start: 202209

REACTIONS (3)
  - Blood testosterone decreased [Unknown]
  - Drug ineffective [Unknown]
  - Product quality issue [Unknown]

NARRATIVE: CASE EVENT DATE: 20211101
